FAERS Safety Report 8937104 (Version 1)
Quarter: 2012Q4

REPORT INFORMATION
  Report Type: Spontaneous
  Country: US (occurrence: None)
  Receive Date: 20121128
  Receipt Date: 20121128
  Transmission Date: 20130627
  Serious: Yes (Other)
  Sender: FDA-Public Use
  Company Number: None

PATIENT
  Age: 46 Year
  Sex: Female
  Weight: 61.24 kg

DRUGS (1)
  1. VIVITROL [Suspect]
     Indication: DRUG ADDICTION
     Dosage: 380 mg monthly IM
     Route: 030
     Dates: start: 20120809, end: 20121108

REACTIONS (1)
  - Herpes zoster [None]
